FAERS Safety Report 7606389-4 (Version None)
Quarter: 2011Q3

REPORT INFORMATION
  Report Type: 
  Country: None (occurrence: None)
  Receive Date: 20110713
  Receipt Date: 20110711
  Transmission Date: 20111222
  Serious: Yes (Other)
  Sender: FDA-Public Use
  Company Number: US-PFIZER INC-2011078030

PATIENT
  Sex: Male

DRUGS (10)
  1. LIPITOR [Concomitant]
     Indication: CEREBROVASCULAR ACCIDENT PROPHYLAXIS
  2. IBUPROFEN [Concomitant]
     Indication: PAIN
     Dosage: UNK
     Dates: start: 20080101, end: 20110101
  3. NEXIUM [Concomitant]
     Indication: GASTROOESOPHAGEAL REFLUX DISEASE
     Dosage: UNK
     Dates: start: 20080101, end: 20100101
  4. LIPITOR [Concomitant]
     Indication: MYOCARDIAL INFARCTION
     Dosage: UNK
     Dates: start: 20080101, end: 20100101
  5. CHANTIX [Suspect]
     Indication: SMOKING CESSATION THERAPY
     Dosage: STARTING AND CONTINUING MONTH PACK
     Route: 048
     Dates: start: 20080928, end: 20090127
  6. ADVAIR DISKUS 100/50 [Concomitant]
     Indication: CHRONIC OBSTRUCTIVE PULMONARY DISEASE
     Dosage: UNK
     Dates: start: 20080101, end: 20100101
  7. BENICAR [Concomitant]
     Indication: HYPERTENSION
     Dosage: UNK
     Dates: start: 20080101, end: 20110101
  8. IBUPROFEN [Concomitant]
     Indication: ARTHRITIS
  9. SALBUTAMOL [Concomitant]
     Indication: CHRONIC OBSTRUCTIVE PULMONARY DISEASE
     Dosage: UNK
     Dates: start: 20080101, end: 20110101
  10. CHANTIX [Suspect]
     Dosage: STARTING AND CONTINUING MONTH PACK
     Route: 048
     Dates: start: 20090612, end: 20090710

REACTIONS (6)
  - DEPRESSION [None]
  - CLAUSTROPHOBIA [None]
  - ANXIETY [None]
  - DYSPNOEA [None]
  - ATTENTION DEFICIT/HYPERACTIVITY DISORDER [None]
  - LOSS OF CONSCIOUSNESS [None]
